FAERS Safety Report 9183786 (Version 1)
Quarter: 2012Q4

REPORT INFORMATION
  Report Type: 
  Country: AU (occurrence: AU)
  Receive Date: 20121101
  Receipt Date: 20121101
  Transmission Date: 20130627
  Serious: Yes (Hospitalization)
  Sender: FDA-Public Use
  Company Number: AU-PFIZER INC-2012267012

PATIENT
  Age: 80 Year
  Sex: Female

DRUGS (7)
  1. REVATIO [Suspect]
     Indication: PULMONARY HYPERTENSION
     Dosage: 20 mg, 2x/day
     Dates: start: 20121015
  2. AVAPRO [Concomitant]
     Dosage: 300 mg, 1x/day
  3. CARDIZEM [Concomitant]
     Dosage: 180 mg, 1x/day
  4. TEGRETOL [Concomitant]
     Dosage: 100 mg, 1x/day
  5. ALDACTONE [Concomitant]
     Dosage: 25 mg, 2x/day
  6. LASIX [Concomitant]
     Dosage: 40 mg, 1x/day
  7. VITAMIN D [Concomitant]

REACTIONS (3)
  - Cardiac failure [Not Recovered/Not Resolved]
  - Stress cardiomyopathy [Not Recovered/Not Resolved]
  - Infection [Not Recovered/Not Resolved]
